FAERS Safety Report 18456422 (Version 2)
Quarter: 2020Q4

REPORT INFORMATION
  Report Type: Spontaneous
  Country: US (occurrence: US)
  Receive Date: 20201103
  Receipt Date: 20201111
  Transmission Date: 20210114
  Serious: No
  Sender: FDA-Public Use
  Company Number: US-TEVA-2020-US-1844396

PATIENT
  Sex: Female

DRUGS (1)
  1. PROVIGIL GENERIC [Suspect]
     Active Substance: MODAFINIL
     Route: 065

REACTIONS (4)
  - Therapeutic product effect incomplete [Unknown]
  - Feeling abnormal [Unknown]
  - Product substitution issue [Unknown]
  - Headache [Unknown]
